FAERS Safety Report 6256108-1 (Version None)
Quarter: 2009Q3

REPORT INFORMATION
  Report Type: 
  Country: None (occurrence: None)
  Receive Date: 20090706
  Receipt Date: 20090624
  Transmission Date: 20100115
  Serious: Yes (Hospitalization)
  Sender: FDA-Public Use
  Company Number: FR-WYE-H09966909

PATIENT
  Sex: Female

DRUGS (11)
  1. CORDARONE [Suspect]
     Indication: ARRHYTHMIA
     Dosage: 200 MG DAILY FROM UNKNOWN TO 2009
     Route: 048
  2. CORDARONE [Interacting]
     Dosage: (DOSE INCREASED) SPECIFIC DOSE AND FREQUENCY NOT SPECIFIED
     Route: 065
     Dates: start: 20090301
  3. DEROXAT [Interacting]
     Indication: DEPRESSION
     Dosage: 20 MG DAILY FROM UNKNOWN DATE TO STOPPED IN 2009
     Route: 048
  4. DEROXAT [Interacting]
     Dosage: (DOSE REDUCED) SPECIFIC DOSE AND FREQUENCY NOT SPECIFIED
     Route: 048
     Dates: start: 20090101
  5. TAGAMET [Concomitant]
     Indication: GASTROOESOPHAGEAL REFLUX DISEASE
     Route: 048
     Dates: start: 20090301, end: 20090309
  6. HEMIGOXINE NATIVELLE [Concomitant]
     Dosage: DOSE AND FREQUENCY NOT SPECIFIED
     Route: 048
  7. TAREG [Concomitant]
     Indication: HYPERTENSION
     Route: 048
     Dates: start: 20090301, end: 20090314
  8. CARDENSIEL [Concomitant]
     Dosage: DOSE AND FREQUENCY NOT SPECIFIED
     Route: 048
  9. LASIX [Concomitant]
     Dosage: DOSE AND FREQUENCY NOT SPECIFIED
     Route: 065
  10. PREVISCAN [Interacting]
     Indication: PROPHYLAXIS
     Dosage: 5 MG ONCE A DAY FROM UNKNOWN DATE TO STOPPED ON 01-MAR-2009
     Route: 048
  11. VASTAREL [Concomitant]
     Indication: DIZZINESS
     Route: 048
     Dates: start: 20090301, end: 20090309

REACTIONS (3)
  - DRUG INTERACTION [None]
  - FALL [None]
  - TRAUMATIC HAEMATOMA [None]
